FAERS Safety Report 16184306 (Version 3)
Quarter: 2019Q2

REPORT INFORMATION
  Report Type: Spontaneous
  Country: US (occurrence: US)
  Receive Date: 20190411
  Receipt Date: 20190429
  Transmission Date: 20190711
  Serious: No
  Sender: FDA-Public Use
  Company Number: US-PFIZER INC-2019148885

PATIENT
  Age: 72 Year
  Sex: Female

DRUGS (2)
  1. MORPHINE SULFATE. [Suspect]
     Active Substance: MORPHINE SULFATE
     Dosage: UNK
  2. NOVOCAINE [Suspect]
     Active Substance: PROCAINE
     Dosage: UNK

REACTIONS (2)
  - Drug hypersensitivity [Unknown]
  - Nausea [Unknown]
